FAERS Safety Report 22918729 (Version 2)
Quarter: 2023Q4

REPORT INFORMATION
  Report Type: Spontaneous
  Country: US (occurrence: US)
  Receive Date: 20230907
  Receipt Date: 20231018
  Transmission Date: 20240109
  Serious: No
  Sender: FDA-Public Use
  Company Number: US-MYLANLABS-2023M1087844

PATIENT
  Sex: Female
  Weight: 55.79 kg

DRUGS (2)
  1. ESTRADIOL TRANSDERMAL SYSTEM [Suspect]
     Active Substance: ESTRADIOL
     Indication: Blood oestrogen
     Dosage: 0.05 MILLIGRAM
     Route: 062
     Dates: start: 20230524, end: 20230525
  2. ESTRADIOL TRANSDERMAL SYSTEM [Suspect]
     Active Substance: ESTRADIOL
     Dosage: UNK
     Route: 065

REACTIONS (4)
  - Heart rate irregular [Recovered/Resolved]
  - Blood pressure increased [Unknown]
  - Drug ineffective [Unknown]
  - Wrong technique in product usage process [Unknown]
